FAERS Safety Report 10153437 (Version 3)
Quarter: 2014Q2

REPORT INFORMATION
  Report Type: Spontaneous
  Country: MX (occurrence: MX)
  Receive Date: 20140505
  Receipt Date: 20140516
  Transmission Date: 20141212
  Serious: Yes (Other)
  Sender: FDA-Public Use
  Company Number: MX-PFIZER INC-2014120383

PATIENT
  Age: 20 Year
  Sex: Female

DRUGS (1)
  1. LYRICA [Suspect]
     Dosage: 75 MG, 1X/DAY
     Route: 048
     Dates: start: 201404, end: 201404

REACTIONS (4)
  - Nervous system disorder [Recovering/Resolving]
  - Dysphemia [Recovering/Resolving]
  - Dyskinesia [Recovering/Resolving]
  - Mydriasis [Recovering/Resolving]
